FAERS Safety Report 10550604 (Version 1)
Quarter: 2014Q4

REPORT INFORMATION
  Report Type: Spontaneous
  Country: US (occurrence: US)
  Receive Date: 20141029
  Receipt Date: 20141029
  Transmission Date: 20150529
  Serious: No
  Sender: FDA-Public Use
  Company Number: US-LEO PHARMA-229669

PATIENT
  Sex: Female

DRUGS (1)
  1. DAIVONEX [Suspect]
     Active Substance: CALCIPOTRIENE
     Indication: PSORIASIS
     Route: 061
     Dates: start: 20140826

REACTIONS (4)
  - Skin exfoliation [Unknown]
  - Psoriasis [Unknown]
  - Skin hypertrophy [Unknown]
  - Haemorrhage [Unknown]
